FAERS Safety Report 7449283-4 (Version None)
Quarter: 2011Q2

REPORT INFORMATION
  Report Type: 
  Country: None (occurrence: None)
  Receive Date: 20110502
  Receipt Date: 20110422
  Transmission Date: 20111010
  Serious: Yes (Hospitalization)
  Sender: FDA-Public Use
  Company Number: US-BIOGENIDEC-2011BI005312

PATIENT
  Age: 59 Year
  Sex: Female

DRUGS (3)
  1. ATIVAN [Concomitant]
     Indication: MULTIPLE SCLEROSIS
  2. TYSABRI [Suspect]
     Indication: MULTIPLE SCLEROSIS
     Route: 042
     Dates: start: 20100628
  3. NEURONTIN [Concomitant]
     Indication: MULTIPLE SCLEROSIS

REACTIONS (3)
  - BLOOD GLUCOSE INCREASED [None]
  - POOR VENOUS ACCESS [None]
  - MULTIPLE SCLEROSIS RELAPSE [None]
